FAERS Safety Report 14582404 (Version 1)
Quarter: 2018Q1

REPORT INFORMATION
  Report Type: Spontaneous
  Country: US (occurrence: US)
  Receive Date: 20180228
  Receipt Date: 20180228
  Transmission Date: 20180509
  Serious: No
  Sender: FDA-Public Use
  Company Number: PHEH2018US007153

PATIENT
  Sex: Male

DRUGS (2)
  1. FLUTICASONE. [Concomitant]
     Active Substance: FLUTICASONE
     Indication: PRODUCT USED FOR UNKNOWN INDICATION
     Route: 065
  2. CIPRODEX [Suspect]
     Active Substance: CIPROFLOXACIN HYDROCHLORIDE\DEXAMETHASONE
     Indication: PRODUCT USED FOR UNKNOWN INDICATION
     Dosage: 4 GTT, BID
     Route: 001
     Dates: start: 20180219

REACTIONS (5)
  - Throat irritation [Unknown]
  - Inflammation [Unknown]
  - Dermatitis diaper [Unknown]
  - Speech disorder [Unknown]
  - Crying [Unknown]
